FAERS Safety Report 4846999-0 (Version None)
Quarter: 2005Q4

REPORT INFORMATION
  Report Type: 
  Country: None (occurrence: None)
  Receive Date: 20051201
  Receipt Date: 20051122
  Transmission Date: 20060501
  Serious: Yes (Other)
  Sender: FDA-Public Use
  Company Number: 2005154535

PATIENT
  Age: 47 Year
  Sex: Female

DRUGS (1)
  1. SUDAFED PE (PHENYLEPHRINE) [Suspect]
     Indication: NASAL CONGESTION
     Dosage: 1 TABLET ONE TIME, ORAL
     Route: 048
     Dates: start: 20051108, end: 20051108

REACTIONS (2)
  - EYELID OEDEMA [None]
  - HYPERSENSITIVITY [None]
